FAERS Safety Report 9363690 (Version 1)
Quarter: 2013Q2

REPORT INFORMATION
  Report Type: Spontaneous
  Country: US (occurrence: US)
  Receive Date: 20130624
  Receipt Date: 20130624
  Transmission Date: 20140414
  Serious: Yes (Other)
  Sender: FDA-Public Use
  Company Number: US-JNJFOC-20130608054

PATIENT
  Age: 66 Year
  Sex: Male
  Weight: 67.13 kg

DRUGS (3)
  1. TYLENOL ARTHRITIS PAIN EXTENDED RELIEF [Suspect]
     Route: 048
  2. TYLENOL ARTHRITIS PAIN EXTENDED RELIEF [Suspect]
     Indication: ARTHRALGIA
     Route: 048
  3. RAPAFLO [Interacting]
     Indication: URINE FLOW DECREASED
     Route: 048
     Dates: start: 20130519, end: 20130522

REACTIONS (3)
  - Hallucination [Recovered/Resolved]
  - Drug interaction [Recovered/Resolved]
  - Product quality issue [None]
